FAERS Safety Report 4685352-X (Version None)
Quarter: 2005Q2

REPORT INFORMATION
  Report Type: 
  Country: None (occurrence: None)
  Receive Date: 20050603
  Receipt Date: 20050520
  Transmission Date: 20051028
  Serious: Yes (Hospitalization)
  Sender: FDA-Public Use
  Company Number: 20050008227

PATIENT
  Age: 44 Year
  Sex: Male

DRUGS (9)
  1. VIREAD [Suspect]
     Dosage: 300 MG, 1 IN 1 D, ORAL
     Route: 048
     Dates: end: 20050307
  2. NORVIR [Concomitant]
  3. ZIAGEN [Concomitant]
  4. FUZEON [Concomitant]
  5. FOSAMPRENAVIR  (FOSAMPRENAVIR) [Concomitant]
  6. INDERAL [Concomitant]
  7. DIFLUCAN [Concomitant]
  8. RABEPRAZOLE SODIUM [Concomitant]
  9. BACTRIM [Concomitant]

REACTIONS (18)
  - ALANINE AMINOTRANSFERASE INCREASED [None]
  - AMMONIA INCREASED [None]
  - ASPARTATE AMINOTRANSFERASE INCREASED [None]
  - BLINDNESS CORTICAL [None]
  - CARDIAC MURMUR [None]
  - CHEST X-RAY ABNORMAL [None]
  - CONFUSIONAL STATE [None]
  - DEPRESSED LEVEL OF CONSCIOUSNESS [None]
  - DISORIENTATION [None]
  - GAMMA-GLUTAMYLTRANSFERASE INCREASED [None]
  - HEMIPARESIS [None]
  - HYPONATRAEMIA [None]
  - HYPOPHOSPHATAEMIA [None]
  - INFLAMMATION [None]
  - MALAISE [None]
  - NAUSEA [None]
  - PNEUMOCOCCAL INFECTION [None]
  - THROMBOCYTOPENIA [None]
